FAERS Safety Report 6129499-X (Version None)
Quarter: 2009Q1

REPORT INFORMATION
  Report Type: 
  Country: None (occurrence: None)
  Receive Date: 20090324
  Receipt Date: 20090314
  Transmission Date: 20090719
  Serious: Yes (Hospitalization, Other)
  Sender: FDA-Public Use
  Company Number: US-AMGEN-QUU338524

PATIENT
  Sex: Female

DRUGS (1)
  1. ENBREL [Suspect]
     Indication: RHEUMATOID ARTHRITIS
     Route: 058
     Dates: start: 20040928

REACTIONS (8)
  - ANORECTAL DISCOMFORT [None]
  - ARTHRALGIA [None]
  - COLONIC POLYP [None]
  - DIARRHOEA [None]
  - DIVERTICULUM [None]
  - KNEE ARTHROPLASTY [None]
  - PRECANCEROUS MUCOSAL LESION [None]
  - PROCTALGIA [None]
